FAERS Safety Report 10713237 (Version 2)
Quarter: 2015Q1

REPORT INFORMATION
  Report Type: Report from Study
  Country: IL (occurrence: IL)
  Receive Date: 20150115
  Receipt Date: 20150116
  Transmission Date: 20150721
  Serious: Yes (Death, Hospitalization)
  Sender: FDA-Public Use
  Company Number: IL-ABBVIE-14P-082-1324441-00

PATIENT
  Age: 71 Year
  Sex: Male

DRUGS (5)
  1. LENTOS [Concomitant]
     Indication: DIABETES MELLITUS
  2. DUODOPA [Suspect]
     Active Substance: CARBIDOPA\LEVODOPA
     Indication: PARKINSON^S DISEASE
     Dosage: 1.2 CC AN HOUR FOR 16 HOURS PER DAY
     Route: 050
     Dates: start: 20141207, end: 20141220
  3. SEROQUEL [Concomitant]
     Active Substance: QUETIAPINE FUMARATE
     Indication: PARKINSON^S DISEASE
  4. SINEMET [Concomitant]
     Active Substance: CARBIDOPA\LEVODOPA
     Indication: PARKINSON^S DISEASE
  5. PK-MERZ [Concomitant]
     Active Substance: AMANTADINE
     Indication: PARKINSON^S DISEASE

REACTIONS (8)
  - Wheezing [Fatal]
  - Communication disorder [Unknown]
  - Increased bronchial secretion [Fatal]
  - Blood glucose increased [Fatal]
  - Hypotension [Fatal]
  - Confusional state [Fatal]
  - Somnolence [Unknown]
  - Pyrexia [Unknown]

NARRATIVE: CASE EVENT DATE: 20141220
